FAERS Safety Report 8496426 (Version 2)
Quarter: 2013Q1

REPORT INFORMATION
  Report Type: Spontaneous
  Country: SE (occurrence: SE)
  Receive Date: 20120405
  Receipt Date: 20130206
  Transmission Date: 20140127
  Serious: Yes (Death, Hospitalization)
  Sender: FDA-Public Use
  Company Number: SE-B.I. PHARMACEUTICALS,INC./RIDGEFIELD-2012-SW-00271SW

PATIENT
  Age: 83 Year
  Sex: Male

DRUGS (2)
  1. PRADAXA [Suspect]
     Indication: THROMBOSIS PROPHYLAXIS
     Dosage: 150 MG
     Dates: start: 20111103, end: 20120313
  2. REPORTED IN NARRATIVE [Concomitant]

REACTIONS (3)
  - Multimorbidity [Fatal]
  - Segmented hyalinising vasculitis [Not Recovered/Not Resolved]
  - Skin ulcer [Not Recovered/Not Resolved]
